FAERS Safety Report 12496981 (Version 4)
Quarter: 2016Q3

REPORT INFORMATION
  Report Type: Report from Study
  Country: US (occurrence: US)
  Receive Date: 20160624
  Receipt Date: 20160916
  Transmission Date: 20161109
  Serious: Yes (Disabling, Other)
  Sender: FDA-Public Use
  Company Number: PHEH2016US015566

PATIENT
  Sex: Male

DRUGS (2)
  1. GLEEVEC [Suspect]
     Active Substance: IMATINIB MESYLATE
     Dosage: 100 MG, 3 OR 4 TIMES DAILY
     Route: 065
  2. GLEEVEC [Suspect]
     Active Substance: IMATINIB MESYLATE
     Indication: NEOPLASM MALIGNANT
     Route: 065

REACTIONS (11)
  - Chest pain [Recovered/Resolved]
  - Pain in extremity [Unknown]
  - Balance disorder [Unknown]
  - Hypoaesthesia [Unknown]
  - Dizziness [Recovering/Resolving]
  - Muscle spasms [Recovering/Resolving]
  - Angina pectoris [Unknown]
  - Dyspnoea [Unknown]
  - Periorbital oedema [Unknown]
  - Nausea [Unknown]
  - Headache [Unknown]
